FAERS Safety Report 6069766-1 (Version None)
Quarter: 2009Q1

REPORT INFORMATION
  Report Type: 
  Country: None (occurrence: None)
  Receive Date: 20090204
  Receipt Date: 20090204
  Transmission Date: 20090719
  Serious: Yes (Hospitalization)
  Sender: FDA-Public Use
  Company Number: None

PATIENT
  Age: 42 Year
  Sex: Male
  Weight: 92.9874 kg

DRUGS (1)
  1. MECLIZINE HCL TAB [Suspect]
     Indication: MOTION SICKNESS
     Dosage: 1 TABLET
     Dates: start: 20090131, end: 20090131

REACTIONS (7)
  - APHASIA [None]
  - CHEST DISCOMFORT [None]
  - DRY MOUTH [None]
  - HEART RATE DECREASED [None]
  - SOMNOLENCE [None]
  - SWOLLEN TONGUE [None]
  - TREMOR [None]
